FAERS Safety Report 9128787 (Version 3)
Quarter: 2013Q2

REPORT INFORMATION
  Report Type: Spontaneous
  Country: GB (occurrence: GB)
  Receive Date: 20130228
  Receipt Date: 20130401
  Transmission Date: 20140414
  Serious: Yes (Hospitalization, Other)
  Sender: FDA-Public Use
  Company Number: GB-009507513-1301GBR008599

PATIENT
  Age: 47 Year
  Sex: Female

DRUGS (6)
  1. ZISPIN SOLTAB [Suspect]
     Indication: DEPRESSION
     Dosage: 30 X 45 MG TABLET
     Route: 048
     Dates: start: 20130108
  2. ZISPIN SOLTAB [Suspect]
     Dosage: 30 MG, HS
     Route: 048
     Dates: start: 2011, end: 201301
  3. ZISPIN SOLTAB [Suspect]
     Dosage: LOW DOSE
     Route: 048
     Dates: start: 20130113
  4. QUETIAPINE FUMARATE [Concomitant]
  5. ACETAMINOPHEN [Concomitant]
     Indication: PAIN
     Dosage: UP TO 4 G, PRN
  6. VENLAFAXINE HYDROCHLORIDE [Concomitant]
     Indication: DEPRESSION
     Dosage: 225 MG, HS

REACTIONS (8)
  - Overdose [Unknown]
  - Hyperhidrosis [Recovering/Resolving]
  - Chills [Unknown]
  - Anxiety [Recovering/Resolving]
  - Discomfort [Recovering/Resolving]
  - Agitation [Unknown]
  - Tachycardia [Unknown]
  - Blood pressure increased [Unknown]
